FAERS Safety Report 18809128 (Version 1)
Quarter: 2021Q1

REPORT INFORMATION
  Report Type: Spontaneous
  Country: GB (occurrence: GB)
  Receive Date: 20210129
  Receipt Date: 20210129
  Transmission Date: 20210419
  Serious: Yes (Other)
  Sender: FDA-Public Use
  Company Number: GB-ACCORD-216271

PATIENT
  Sex: Male

DRUGS (1)
  1. BICALUTAMIDE ACCORD [Suspect]
     Active Substance: BICALUTAMIDE
     Indication: PROSTATE CANCER
     Dosage: STRENGTH 50 MG

REACTIONS (1)
  - Erectile dysfunction [Unknown]
